FAERS Safety Report 7554148-3 (Version None)
Quarter: 2011Q2

REPORT INFORMATION
  Report Type: 
  Country: None (occurrence: None)
  Receive Date: 20110617
  Receipt Date: 20110613
  Transmission Date: 20111010
  Serious: Yes (Hospitalization, Other)
  Sender: FDA-Public Use
  Company Number: US-PFIZER INC-2011128910

PATIENT
  Age: 51 Year
  Sex: Male

DRUGS (3)
  1. OXYCODONE [Suspect]
     Indication: PAIN
     Dosage: UP TO 12 TIMES/DAY
  2. DIAZEPAM [Concomitant]
     Indication: HYPOTONIA
     Dosage: 10 MG, UNK
  3. VARENICLINE TARTRATE [Suspect]
     Dosage: 0.5 MG, 1X/DAY

REACTIONS (6)
  - DRUG WITHDRAWAL SYNDROME [None]
  - IRRITABILITY [None]
  - RESTLESSNESS [None]
  - IDEAS OF REFERENCE [None]
  - MANIA [None]
  - PARANOIA [None]
